FAERS Safety Report 5152339-2 (Version None)
Quarter: 2006Q4

REPORT INFORMATION
  Report Type: 
  Country: None (occurrence: None)
  Receive Date: 20061116
  Receipt Date: 20061109
  Transmission Date: 20070319
  Serious: Yes (Other)
  Sender: FDA-Public Use
  Company Number: 2006UW22755

PATIENT
  Age: 59 Year
  Sex: Female
  Weight: 88.5 kg

DRUGS (2)
  1. ARIMIDEX [Suspect]
     Indication: BREAST CANCER
     Route: 048
     Dates: start: 20060501
  2. FOLIC ACID [Concomitant]

REACTIONS (2)
  - BONE PAIN [None]
  - PNEUMONIA [None]
